APPROVED DRUG PRODUCT: PROCAINAMIDE HYDROCHLORIDE
Active Ingredient: PROCAINAMIDE HYDROCHLORIDE
Strength: 500MG/ML
Dosage Form/Route: INJECTABLE;INJECTION
Application: A218674 | Product #002 | TE Code: AP
Applicant: CAPLIN STERILES LTD
Approved: Feb 4, 2025 | RLD: No | RS: No | Type: RX